FAERS Safety Report 20178171 (Version 1)
Quarter: 2021Q4

REPORT INFORMATION
  Report Type: Spontaneous
  Country: US (occurrence: US)
  Receive Date: 20211213
  Receipt Date: 20211213
  Transmission Date: 20220304
  Serious: No
  Sender: FDA-Public Use
  Company Number: US-SA-SAC20211209001472

PATIENT
  Age: 67 Year
  Sex: Male

DRUGS (14)
  1. DUPIXENT [Suspect]
     Active Substance: DUPILUMAB
     Dosage: 600 MG, 1X
     Route: 058
  2. DUPIXENT [Suspect]
     Active Substance: DUPILUMAB
     Dosage: 300 MG, QOW
     Route: 058
  3. MOXIFLOXACIN [Concomitant]
     Active Substance: MOXIFLOXACIN
  4. PREDNISONE [Concomitant]
     Active Substance: PREDNISONE
  5. TELMISARTAN [Concomitant]
     Active Substance: TELMISARTAN
  6. PROMETHAZINE DM [Concomitant]
     Active Substance: DEXTROMETHORPHAN HYDROBROMIDE\PROMETHAZINE HYDROCHLORIDE
  7. AZITHROMYCIN [Concomitant]
     Active Substance: AZITHROMYCIN
  8. BENZONATATE [Concomitant]
     Active Substance: BENZONATATE
  9. LEVOFLOXACIN [Concomitant]
     Active Substance: LEVOFLOXACIN
  10. METRONIDAZOLE [Concomitant]
     Active Substance: METRONIDAZOLE
  11. EZETIMIBE [Concomitant]
     Active Substance: EZETIMIBE
  12. PFIZER-BIONTECH COVID-19 VACCINE [Concomitant]
     Active Substance: TOZINAMERAN
  13. PREDNISOLONE ACETATE [Concomitant]
     Active Substance: PREDNISOLONE ACETATE
  14. EPIDERM [BETAMETHASONE DIPROPIONATE;CHLOROCRESOL;CLIOQUINOL;GENTAMICIN [Concomitant]

REACTIONS (2)
  - Large intestine infection [Recovered/Resolved]
  - Rhinitis [Recovered/Resolved]

NARRATIVE: CASE EVENT DATE: 20211001
